FAERS Safety Report 21989246 (Version 3)
Quarter: 2023Q1

REPORT INFORMATION
  Report Type: Spontaneous
  Country: SK (occurrence: SK)
  Receive Date: 20230214
  Receipt Date: 20230310
  Transmission Date: 20230418
  Serious: Yes (Hospitalization, Other)
  Sender: FDA-Public Use
  Company Number: SK-BRISTOL-MYERS SQUIBB COMPANY-2023-020785

PATIENT
  Age: 86 Year
  Sex: Female
  Weight: 60 kg

DRUGS (4)
  1. ELIQUIS [Suspect]
     Active Substance: APIXABAN
     Indication: Embolism venous
     Route: 048
     Dates: start: 20230116, end: 20230119
  2. CEFOTAXIME [Suspect]
     Active Substance: CEFOTAXIME SODIUM
     Indication: Urosepsis
     Route: 042
     Dates: start: 20230111, end: 20230116
  3. GINKGO [Concomitant]
     Active Substance: GINKGO
     Indication: Product used for unknown indication
  4. NIMESULIDE [Concomitant]
     Active Substance: NIMESULIDE
     Indication: Product used for unknown indication

REACTIONS (6)
  - Epistaxis [Recovered/Resolved]
  - Haemoptysis [Recovered/Resolved]
  - Respiratory failure [Recovered/Resolved]
  - Anaemia [Recovered/Resolved]
  - Respiratory tract infection [Recovered/Resolved]
  - Clostridium colitis [Recovered/Resolved]

NARRATIVE: CASE EVENT DATE: 20230119
